FAERS Safety Report 11514804 (Version 1)
Quarter: 2015Q3

REPORT INFORMATION
  Report Type: Spontaneous
  Country: TW (occurrence: TW)
  Receive Date: 20150916
  Receipt Date: 20150916
  Transmission Date: 20151125
  Serious: Yes (Death)
  Sender: FDA-Public Use
  Company Number: TW-PFIZER INC-2015297624

PATIENT
  Age: 46 Year
  Sex: Male

DRUGS (5)
  1. CISPLATIN. [Concomitant]
     Active Substance: CISPLATIN
  2. DOCETAXEL. [Concomitant]
     Active Substance: DOCETAXEL
  3. ETOPOSIDE. [Concomitant]
     Active Substance: ETOPOSIDE
     Route: 048
  4. CRIZOTINIB [Suspect]
     Active Substance: CRIZOTINIB
     Indication: LUNG ADENOCARCINOMA
  5. PEMETREXED [Concomitant]
     Active Substance: PEMETREXED

REACTIONS (1)
  - Death [Fatal]
